FAERS Safety Report 19001092 (Version 1)
Quarter: 2021Q1

REPORT INFORMATION
  Report Type: Spontaneous
  Country: CN (occurrence: CN)
  Receive Date: 20210311
  Receipt Date: 20210311
  Transmission Date: 20210420
  Serious: No
  Sender: FDA-Public Use
  Company Number: CN-LUPIN PHARMACEUTICALS INC.-2021-03095

PATIENT
  Age: 32 Year
  Sex: Female

DRUGS (27)
  1. ETOPOSIDE. [Suspect]
     Active Substance: ETOPOSIDE
     Dosage: UNK, RECEIVED DURING R?DICE THERAPY
     Route: 065
  2. METHOTREXATE. [Suspect]
     Active Substance: METHOTREXATE
     Indication: DOUBLE HIT LYMPHOMA
     Dosage: UNK, COMBINED WITH RITUXIMAB, GEMCITABINE, OXALIPLATIN AND AZACITIDINE
     Route: 065
  3. DOXORUBICIN [Suspect]
     Active Substance: DOXORUBICIN
     Dosage: UNK, RECEIVED AS A PART OF R?EPOCH
     Route: 065
  4. IBRUTINIB [Suspect]
     Active Substance: IBRUTINIB
     Indication: DOUBLE HIT LYMPHOMA
     Dosage: UNK, RECEIVED AFTER SECOND RELAPSE
     Route: 048
  5. AZACITIDINE. [Suspect]
     Active Substance: AZACITIDINE
     Dosage: UNK, COMBINED WITH METHOTREXATE, RITUXIMAB, GEMCITABINE AND OXALIPLATIN
     Route: 065
  6. RITUXIMAB. [Suspect]
     Active Substance: RITUXIMAB
     Dosage: UNK, RECEIVED AS A PART OF R?DICE
     Route: 065
  7. GEMCITABINE. [Suspect]
     Active Substance: GEMCITABINE
     Indication: DOUBLE HIT LYMPHOMA
     Dosage: UNK, RECEIVED AFTER SECOND RELAPSE
     Route: 065
  8. LENALIDOMIDE [Suspect]
     Active Substance: LENALIDOMIDE
     Indication: DOUBLE HIT LYMPHOMA
     Dosage: UNK
     Route: 065
  9. CYCLOPHOSPHAMIDE. [Suspect]
     Active Substance: CYCLOPHOSPHAMIDE
     Indication: DOUBLE HIT LYMPHOMA
     Dosage: UNK, RECEIVED AS A PART OF R?CHOP THERAPY
     Route: 065
  10. DEXAMETHASONE. [Suspect]
     Active Substance: DEXAMETHASONE
     Indication: DOUBLE HIT LYMPHOMA
     Dosage: UNK, RECEIVED DURING R?DICE THERAPY
     Route: 065
  11. IFOSFAMIDE. [Suspect]
     Active Substance: IFOSFAMIDE
     Indication: DOUBLE HIT LYMPHOMA
     Dosage: UNK, RECEIVED DURING R?DICE THERAPY
     Route: 065
  12. CISPLATIN. [Suspect]
     Active Substance: CISPLATIN
     Indication: DOUBLE HIT LYMPHOMA
     Dosage: UNK, RECEIVED DURING R?DICE THERAPY
     Route: 065
  13. OXALIPLATIN. [Suspect]
     Active Substance: OXALIPLATIN
     Indication: DOUBLE HIT LYMPHOMA
     Dosage: UNK, RECEIVED AFTER SECOND RELAPSE
     Route: 065
  14. PREDNISOLONE. [Suspect]
     Active Substance: PREDNISOLONE
     Indication: DOUBLE HIT LYMPHOMA
     Dosage: UNK, RECEIVED AS A PART OF R?EPOCH THERAPY
     Route: 065
  15. RITUXIMAB. [Suspect]
     Active Substance: RITUXIMAB
     Indication: DOUBLE HIT LYMPHOMA
     Dosage: UNK, RECEIVED AS A PART OF R?CHOP THERAPY
     Route: 065
  16. OXALIPLATIN. [Suspect]
     Active Substance: OXALIPLATIN
     Dosage: UNK, COMBINED WITH METHOTREXATE, RITUXIMAB, GEMCITABINE AND AZACITIDINE
     Route: 065
  17. PREDNISONE. [Suspect]
     Active Substance: PREDNISONE
     Indication: DOUBLE HIT LYMPHOMA
     Dosage: UNK, RECEIVED AS A PART OF R?CHOP THERAPY
     Route: 065
  18. DOXORUBICIN [Suspect]
     Active Substance: DOXORUBICIN
     Indication: DOUBLE HIT LYMPHOMA
     Dosage: UNK, RECEIVED AS A PART OF R?CHOP THERAPY
     Route: 065
  19. AZACITIDINE. [Suspect]
     Active Substance: AZACITIDINE
     Indication: DOUBLE HIT LYMPHOMA
     Dosage: UNK, RECEIVED AFTER SECOND RELAPSE
     Route: 065
  20. RITUXIMAB. [Suspect]
     Active Substance: RITUXIMAB
     Dosage: UNK, RECEIVED AS A PART OF R?EPOCH
     Route: 065
  21. RITUXIMAB. [Suspect]
     Active Substance: RITUXIMAB
     Dosage: UNK, RECEIVED AFTER SECOND RELAPSE
     Route: 065
  22. RITUXIMAB. [Suspect]
     Active Substance: RITUXIMAB
     Dosage: UNK, RECEIVED AS A PART OF COMBINATION CHEMOTHERAPY OF METHOTREXATE, GEMCITABINE, OXALIPLATIN AND AZ
     Route: 065
  23. VINCRISTINE [Suspect]
     Active Substance: VINCRISTINE
     Dosage: UNK, RECEIVED AS A PART OF R?EPOCH
     Route: 065
  24. GEMCITABINE. [Suspect]
     Active Substance: GEMCITABINE
     Dosage: UNK, COMBINED WITH RITUXIMAB, METHOTREXATE, OXALIPLATIN AND AZACITIDINE
     Route: 065
  25. ETOPOSIDE. [Suspect]
     Active Substance: ETOPOSIDE
     Indication: DOUBLE HIT LYMPHOMA
     Dosage: UNK, RECEIVED DURING R?EPOCH THERAPY
     Route: 065
  26. CYCLOPHOSPHAMIDE. [Suspect]
     Active Substance: CYCLOPHOSPHAMIDE
     Dosage: UNK, RECEIVED AS A PART OF R?EPOCH
     Route: 065
  27. VINCRISTINE [Suspect]
     Active Substance: VINCRISTINE
     Indication: DOUBLE HIT LYMPHOMA
     Dosage: UNK, RECEIVED AS A PART OF R?CHOP THERAPY
     Route: 065

REACTIONS (1)
  - Off label use [Unknown]
